FAERS Safety Report 17351059 (Version 1)
Quarter: 2020Q1

REPORT INFORMATION
  Report Type: Other
  Country: US (occurrence: US)
  Receive Date: 20200130
  Receipt Date: 20200130
  Transmission Date: 20200409
  Serious: Yes (Hospitalization, Other)
  Sender: FDA-Public Use
  Company Number: US-CATALYST PHARMACEUTICALS, INC-2019CAT00278

PATIENT
  Age: 55 Year
  Sex: Female
  Weight: 130.18 kg

DRUGS (16)
  1. FIRDAPSE [Suspect]
     Active Substance: AMIFAMPRIDINE
     Indication: MYASTHENIC SYNDROME
     Dosage: UNK, 4X/DAY (EVERY 6 HOURS)
     Route: 048
     Dates: start: 20190401
  2. LISINOPRIL. [Concomitant]
     Active Substance: LISINOPRIL
  3. BUDESONIDE. [Concomitant]
     Active Substance: BUDESONIDE
  4. LDN [Concomitant]
     Active Substance: NALTREXONE
  5. PROBIOTICS [Concomitant]
     Active Substance: PROBIOTICS NOS
  6. MODAFINIL. [Concomitant]
     Active Substance: MODAFINIL
  7. TIROSINT [Concomitant]
     Active Substance: LEVOTHYROXINE SODIUM
  8. TUMERIC [Concomitant]
     Active Substance: HERBALS\TURMERIC
  9. ARTHROTEC [Concomitant]
     Active Substance: DICLOFENAC SODIUM\MISOPROSTOL
  10. CALCIUM [Concomitant]
     Active Substance: CALCIUM
  11. PANTOPRAZOLE [Concomitant]
     Active Substance: PANTOPRAZOLE
  12. PREDNISONE. [Concomitant]
     Active Substance: PREDNISONE
  13. TRULICITY [Concomitant]
     Active Substance: DULAGLUTIDE
  14. CYMBALTA [Concomitant]
     Active Substance: DULOXETINE HYDROCHLORIDE
  15. TART CHERRY [Concomitant]
  16. VITAMIN B12 [Concomitant]
     Active Substance: CYANOCOBALAMIN

REACTIONS (3)
  - Gastrointestinal disorder [Unknown]
  - Product substitution issue [Unknown]
  - Unevaluable event [Unknown]

NARRATIVE: CASE EVENT DATE: 20190624
